FAERS Safety Report 11449237 (Version 1)
Quarter: 2015Q3

REPORT INFORMATION
  Report Type: Spontaneous
  Country: JP (occurrence: JP)
  Receive Date: 20150902
  Receipt Date: 20150902
  Transmission Date: 20151125
  Serious: Yes (Other)
  Sender: FDA-Public Use
  Company Number: JP-TAKEDA-2014TJP008417

PATIENT
  Age: 62 Year
  Sex: Female
  Weight: 75.5 kg

DRUGS (2)
  1. NESINA [Suspect]
     Active Substance: ALOGLIPTIN BENZOATE
     Indication: TYPE 2 DIABETES MELLITUS
     Dosage: 25 MG, QD
     Route: 048
     Dates: start: 20140611, end: 20140621
  2. ARIMIDEX [Concomitant]
     Active Substance: ANASTROZOLE
     Indication: POSTOPERATIVE CARE
     Dosage: 1 MG, QD
     Route: 048
     Dates: start: 20110701

REACTIONS (1)
  - Toxic skin eruption [Recovered/Resolved]

NARRATIVE: CASE EVENT DATE: 20140621
